FAERS Safety Report 23605381 (Version 1)
Quarter: 2024Q1

REPORT INFORMATION
  Report Type: Spontaneous
  Country: US (occurrence: US)
  Receive Date: 20240307
  Receipt Date: 20240307
  Transmission Date: 20240410
  Serious: No
  Sender: FDA-Public Use
  Company Number: US-TAKEDA-2024TUS018856

PATIENT
  Sex: Female
  Weight: 59 kg

DRUGS (1)
  1. ENTYVIO [Suspect]
     Active Substance: VEDOLIZUMAB
     Indication: Colitis ulcerative
     Route: 042
     Dates: start: 20231128, end: 20240109

REACTIONS (6)
  - Swelling face [Unknown]
  - Pharyngeal swelling [Unknown]
  - Skin swelling [Unknown]
  - Irritability [Unknown]
  - Paraesthesia [Unknown]
  - Erythema [Unknown]
